FAERS Safety Report 17719533 (Version 1)
Quarter: 2020Q2

REPORT INFORMATION
  Report Type: Spontaneous
  Country: CN (occurrence: CN)
  Receive Date: 20200428
  Receipt Date: 20200428
  Transmission Date: 20200714
  Serious: Yes (Hospitalization)
  Sender: FDA-Public Use
  Company Number: CN-BAXTER-2020BAX009059

PATIENT
  Age: 2 Year
  Sex: Female
  Weight: 10 kg

DRUGS (5)
  1. ENDOXAN [Suspect]
     Active Substance: CYCLOPHOSPHAMIDE
     Indication: NEUROBLASTOMA
     Dosage: DAY 1-2, 70 MG/KG
     Route: 041
     Dates: start: 20200205, end: 20200206
  2. TAMOBI [VINDESINE SULFATE] [Suspect]
     Active Substance: VINDESINE SULFATE
     Indication: NEUROBLASTOMA
     Dosage: LYOPHILIZED POWDER, DAY 1-3, 0.044 MG/KG
     Route: 041
     Dates: start: 20200205, end: 20200207
  3. ADRIAMYCIN [Suspect]
     Active Substance: DOXORUBICIN HYDROCHLORIDE
     Indication: NEUROBLASTOMA
     Dosage: 0.83 MG/KG, DAY 1
     Route: 041
     Dates: start: 20200205, end: 20200205
  4. UROMITEXAN [Suspect]
     Active Substance: MESNA
     Indication: PROPHYLAXIS
     Route: 065
     Dates: start: 20200405
  5. ADRIAMYCIN [Suspect]
     Active Substance: DOXORUBICIN HYDROCHLORIDE
     Dosage: LYOPHILIZED POWDER, DAY 2-3, 0.83 MG/KG
     Route: 041
     Dates: start: 20200206, end: 20200207

REACTIONS (1)
  - Bone marrow failure [Recovered/Resolved]

NARRATIVE: CASE EVENT DATE: 20200208
